FAERS Safety Report 6944724-0 (Version None)
Quarter: 2010Q3

REPORT INFORMATION
  Report Type: 
  Country: None (occurrence: None)
  Receive Date: 20100827
  Receipt Date: 20100819
  Transmission Date: 20110219
  Serious: Yes (Other)
  Sender: FDA-Public Use
  Company Number: US-EISAI INC.-E7867-00141-SPO-US

PATIENT
  Age: 25 Year
  Sex: Female

DRUGS (1)
  1. GLIADEL [Suspect]
     Indication: ASTROCYTOMA
     Dosage: UNKNOWN
     Route: 018
     Dates: start: 20100101

REACTIONS (1)
  - BRAIN MASS [None]
